FAERS Safety Report 16413587 (Version 1)
Quarter: 2019Q2

REPORT INFORMATION
  Report Type: Report from Study
  Country: US (occurrence: US)
  Receive Date: 20190611
  Receipt Date: 20190611
  Transmission Date: 20190711
  Serious: Yes (Other)
  Sender: FDA-Public Use
  Company Number: US-ROCHE-2332471

PATIENT
  Sex: Female
  Weight: 70.37 kg

DRUGS (4)
  1. OCREVUS [Suspect]
     Active Substance: OCRELIZUMAB
     Indication: RELAPSING MULTIPLE SCLEROSIS
     Route: 042
     Dates: start: 201703
  2. OCREVUS [Suspect]
     Active Substance: OCRELIZUMAB
     Route: 042
     Dates: start: 20181228
  3. CANNABIS [Concomitant]
     Active Substance: CANNABIS SATIVA SUBSP. INDICA TOP
     Indication: LIMB DISCOMFORT
     Dosage: APPLIED TO BILATERAL FEET AT NIGHT OR AS NEEDED
     Route: 061
  4. CBD OIL [Concomitant]
     Active Substance: CANNABIDIOL\HERBALS
     Indication: MUSCULOSKELETAL STIFFNESS
     Dosage: TAKEN AT NIGHT AS NEEDED
     Route: 065

REACTIONS (5)
  - Nephrolithiasis [Recovered/Resolved]
  - Peripheral swelling [Not Recovered/Not Resolved]
  - Urinary tract infection [Not Recovered/Not Resolved]
  - Sputum discoloured [Recovered/Resolved]
  - Limb discomfort [Not Recovered/Not Resolved]
